FAERS Safety Report 7229219-1 (Version None)
Quarter: 2011Q1

REPORT INFORMATION
  Report Type: 
  Country: None (occurrence: None)
  Receive Date: 20110117
  Receipt Date: 20110110
  Transmission Date: 20110831
  Serious: Yes (Hospitalization)
  Sender: FDA-Public Use
  Company Number: BR-TYCO HEALTHCARE/MALLINCKRODT-T201100037

PATIENT
  Age: 65 Year
  Sex: Male

DRUGS (1)
  1. OPTIRAY 350 [Suspect]
     Dosage: 125 ML, SINGLE
     Route: 042
     Dates: start: 20101228, end: 20101228

REACTIONS (3)
  - SHOCK [None]
  - BRONCHOSPASM [None]
  - GRAND MAL CONVULSION [None]
